FAERS Safety Report 8859147 (Version 6)
Quarter: 2017Q2

REPORT INFORMATION
  Report Type: Spontaneous
  Country: US (occurrence: US)
  Receive Date: 20121024
  Receipt Date: 20170418
  Transmission Date: 20170830
  Serious: Yes (Hospitalization, Other)
  Sender: FDA-Public Use
  Company Number: US-009507513-1206USA04842

PATIENT
  Sex: Female

DRUGS (5)
  1. BONIVA [Suspect]
     Active Substance: IBANDRONATE SODIUM
     Indication: OSTEOPOROSIS
     Dosage: 150 MG, QM
     Route: 048
     Dates: start: 201003, end: 201112
  2. FOSAMAX PLUS D [Suspect]
     Active Substance: ALENDRONATE SODIUM\CHOLECALCIFEROL
     Indication: OSTEOPOROSIS
     Dosage: 70 MG-2800 IU
     Route: 048
     Dates: start: 200512, end: 200902
  3. FOSAMAX [Suspect]
     Active Substance: ALENDRONATE SODIUM
     Indication: OSTEOPOROSIS
     Dosage: 70 MG, UNK
     Route: 048
     Dates: start: 20040223, end: 200512
  4. ALENDRONATE SODIUM. [Suspect]
     Active Substance: ALENDRONATE SODIUM
     Dosage: 70 MG, UNK
  5. FOSAMAX [Suspect]
     Active Substance: ALENDRONATE SODIUM
     Indication: OSTEOPOROSIS
     Dosage: 70 MG, QW
     Route: 048
     Dates: start: 2004, end: 2010

REACTIONS (21)
  - Open reduction of fracture [Unknown]
  - Artificial crown procedure [Unknown]
  - Hypercholesterolaemia [Unknown]
  - Electrocardiogram ST-T segment abnormal [Unknown]
  - Protein total increased [Unknown]
  - Femur fracture [Recovered/Resolved]
  - Hypertriglyceridaemia [Unknown]
  - Femur fracture [Unknown]
  - Lumbar spinal stenosis [Unknown]
  - Osteoporosis [Unknown]
  - Diverticulum [Unknown]
  - Fall [Unknown]
  - Spinal operation [Unknown]
  - Skin abrasion [Unknown]
  - Electrocardiogram QRS complex abnormal [Unknown]
  - Spinal rod insertion [Unknown]
  - Low turnover osteopathy [Unknown]
  - Headache [Unknown]
  - Endodontic procedure [Unknown]
  - Foot fracture [Unknown]
  - Gastrointestinal disorder [Unknown]

NARRATIVE: CASE EVENT DATE: 2007
